FAERS Safety Report 4328505-2 (Version None)
Quarter: 2004Q1

REPORT INFORMATION
  Report Type: 
  Country: None (occurrence: None)
  Receive Date: 20040331
  Receipt Date: 20030520
  Transmission Date: 20041129
  Serious: Yes (Disabling)
  Sender: FDA-Public Use
  Company Number: GB-MERCK-0305GBR00133

PATIENT
  Age: 69 Year
  Sex: Male
  Weight: 99 kg

DRUGS (7)
  1. ASPIRIN [Concomitant]
     Indication: DIABETES MELLITUS
     Route: 065
     Dates: start: 20020117
  2. ASPIRIN [Concomitant]
     Indication: PERIPHERAL VASCULAR DISORDER
     Route: 065
     Dates: start: 20020117
  3. BENDROFLUMETHIAZIDE [Concomitant]
     Indication: HYPERTENSION
     Route: 065
     Dates: start: 20010219
  4. BISOPROLOL [Concomitant]
     Indication: HYPERTENSION
     Route: 065
     Dates: start: 20020916
  5. GLICLAZIDE [Concomitant]
     Indication: DIABETES MELLITUS
     Route: 065
     Dates: start: 19981203
  6. ZOCOR [Suspect]
     Indication: HYPERCHOLESTEROLAEMIA
     Route: 048
     Dates: start: 20021007, end: 20030327
  7. ZOCOR [Suspect]
     Indication: DIABETES MELLITUS
     Route: 048
     Dates: start: 20021007, end: 20030327

REACTIONS (2)
  - BLOOD CREATINE PHOSPHOKINASE INCREASED [None]
  - SPINAL COLUMN STENOSIS [None]
